FAERS Safety Report 12532888 (Version 1)
Quarter: 2016Q3

REPORT INFORMATION
  Report Type: Spontaneous
  Country: US (occurrence: US)
  Receive Date: 20160706
  Receipt Date: 20160706
  Transmission Date: 20161109
  Serious: No
  Sender: FDA-Public Use
  Company Number: US-PURDUE-USA-2015-0125975

PATIENT
  Age: 45 Year
  Sex: Female

DRUGS (2)
  1. BUTRANS [Suspect]
     Active Substance: BUPRENORPHINE
     Indication: ROAD TRAFFIC ACCIDENT
     Dosage: 15 MCG/HR, WEEKLY
     Route: 062
  2. BUTRANS [Suspect]
     Active Substance: BUPRENORPHINE
     Indication: INJURY
     Dosage: 15 MCG/HR, WEEKLY
     Route: 062
     Dates: start: 201504

REACTIONS (4)
  - Application site rash [Unknown]
  - Application site pruritus [Unknown]
  - Application site pain [Unknown]
  - Application site discolouration [Unknown]

NARRATIVE: CASE EVENT DATE: 20150806
